FAERS Safety Report 19843923 (Version 2)
Quarter: 2021Q3

REPORT INFORMATION
  Report Type: Spontaneous
  Country: JP (occurrence: JP)
  Receive Date: 20210917
  Receipt Date: 20210929
  Transmission Date: 20211014
  Serious: Yes (Hospitalization, Other)
  Sender: FDA-Public Use
  Company Number: JP-AMGEN-JPNSP2021141983

PATIENT
  Age: 40 Year
  Sex: Male
  Weight: 98 kg

DRUGS (5)
  1. BLINCYTO [Suspect]
     Active Substance: BLINATUMOMAB
     Indication: DISEASE RECURRENCE
     Dosage: 9 MICROGRAM, QD
     Route: 041
     Dates: start: 20200709, end: 20200715
  2. CYLOCIDE [Concomitant]
     Active Substance: CYTARABINE
     Dosage: 40 MILLIGRAM
  3. BLINCYTO [Suspect]
     Active Substance: BLINATUMOMAB
     Indication: B PRECURSOR TYPE ACUTE LEUKAEMIA
     Dosage: 28 MICROGRAM, QD
     Route: 041
     Dates: start: 20200716, end: 20200805
  4. BLINCYTO [Suspect]
     Active Substance: BLINATUMOMAB
     Dosage: 28 MICROGRAM, QD
     Route: 041
     Dates: start: 20200918
  5. PREDONINE [PREDNISOLONE ACETATE] [Concomitant]
     Active Substance: PREDNISOLONE ACETATE
     Dosage: 10 MILLIGRAM

REACTIONS (1)
  - Metastases to nervous system [Recovered/Resolved]

NARRATIVE: CASE EVENT DATE: 20200806
